FAERS Safety Report 8001170-9 (Version None)
Quarter: 2011Q4

REPORT INFORMATION
  Report Type: 
  Country: None (occurrence: None)
  Receive Date: 20111220
  Receipt Date: 20111207
  Transmission Date: 20120403
  Serious: Yes (Death)
  Sender: FDA-Public Use
  Company Number: TPA2011A08294

PATIENT
  Age: 48 Year
  Sex: Male

DRUGS (1)
  1. ACTOS [Suspect]
     Indication: TYPE 2 DIABETES MELLITUS

REACTIONS (2)
  - TREATMENT NONCOMPLIANCE [None]
  - HAEMATURIA [None]
